FAERS Safety Report 6245679-7 (Version None)
Quarter: 2009Q2

REPORT INFORMATION
  Report Type: 
  Country: None (occurrence: None)
  Receive Date: 20090625
  Receipt Date: 20090616
  Transmission Date: 20091009
  Serious: Yes (Other)
  Sender: FDA-Public Use
  Company Number: EG-ABBOTT-09P-048-0580050-00

PATIENT
  Age: 11 Year
  Sex: Male

DRUGS (1)
  1. DEPAKENE [Suspect]
     Indication: EPILEPSY
     Dosage: 750 MG DAILY
     Route: 048

REACTIONS (2)
  - EPILEPSY [None]
  - MEDICATION RESIDUE [None]
